FAERS Safety Report 22149782 (Version 1)
Quarter: 2023Q1

REPORT INFORMATION
  Report Type: Spontaneous
  Country: GB (occurrence: GB)
  Receive Date: 20230329
  Receipt Date: 20230329
  Transmission Date: 20230417
  Serious: Yes (Hospitalization)
  Sender: FDA-Public Use
  Company Number: GB-AMGEN-GBRSP2023051764

PATIENT
  Age: 65 Year
  Sex: Female

DRUGS (5)
  1. FILGRASTIM [Suspect]
     Active Substance: FILGRASTIM
     Indication: Product used for unknown indication
     Dosage: 48 MILLION UNITS
     Route: 058
  2. CARBOPLATIN [Concomitant]
     Active Substance: CARBOPLATIN
     Dosage: UNK
     Route: 065
     Dates: start: 20230215, end: 20230215
  3. IRBESARTAN [Concomitant]
     Active Substance: IRBESARTAN
     Dosage: UNK
     Route: 065
     Dates: start: 20230215, end: 20230215
  4. TINZAPARIN [Concomitant]
     Active Substance: TINZAPARIN
     Dosage: UNK
     Route: 065
     Dates: start: 20230215, end: 20230215
  5. OMEPRAZOLE [Concomitant]
     Active Substance: OMEPRAZOLE
     Dosage: UNK
     Route: 065
     Dates: start: 20230215, end: 20230215

REACTIONS (9)
  - Swelling face [Unknown]
  - Peripheral swelling [Unknown]
  - Pain in jaw [Unknown]
  - Chest discomfort [Not Recovered/Not Resolved]
  - Pleural effusion [Not Recovered/Not Resolved]
  - Swelling [Unknown]
  - Neck pain [Unknown]
  - Dyspnoea [Not Recovered/Not Resolved]
  - Arthralgia [Unknown]

NARRATIVE: CASE EVENT DATE: 20230215
